FAERS Safety Report 8449003-0 (Version None)
Quarter: 2012Q2

REPORT INFORMATION
  Report Type: 
  Country: None (occurrence: None)
  Receive Date: 20120611
  Receipt Date: 20120606
  Transmission Date: 20120825
  Serious: Yes (Other)
  Sender: FDA-Public Use
  Company Number: DSU-2011-07439

PATIENT
  Age: 25 Year
  Sex: Female

DRUGS (2)
  1. THYRAX (LEVOTHYROXINE (LEVOTHYROXINE) [Concomitant]
  2. COLESEVELAM HYDROCHLORIDE [Suspect]
     Indication: HYPERCHOLESTEROLAEMIA
     Dosage: 625 MG (625 MG, QD), PER ORAL
     Route: 048
     Dates: start: 20110601, end: 20120312

REACTIONS (3)
  - CAESAREAN SECTION [None]
  - MECONIUM IN AMNIOTIC FLUID [None]
  - MATERNAL EXPOSURE DURING PREGNANCY [None]
